FAERS Safety Report 16417113 (Version 1)
Quarter: 2019Q2

REPORT INFORMATION
  Report Type: Spontaneous
  Country: FR (occurrence: FR)
  Receive Date: 20190611
  Receipt Date: 20190611
  Transmission Date: 20190711
  Serious: Yes (Hospitalization)
  Sender: FDA-Public Use
  Company Number: FR-TEVA-2019-FR-1060785

PATIENT
  Age: 43 Year
  Sex: Female
  Weight: 94 kg

DRUGS (6)
  1. AMOXICILLINE TRIHYDRATEE [Suspect]
     Active Substance: AMOXICILLIN
     Indication: INFLUENZA LIKE ILLNESS
     Route: 048
     Dates: start: 20171225, end: 20180102
  2. IMODIUM [Suspect]
     Active Substance: LOPERAMIDE HYDROCHLORIDE
     Indication: DIARRHOEA
     Route: 048
     Dates: start: 201712
  3. ABILIFY [Concomitant]
     Active Substance: ARIPIPRAZOLE
     Indication: SCHIZOPHRENIA
     Route: 048
     Dates: start: 2013
  4. XANAX [Concomitant]
     Active Substance: ALPRAZOLAM
     Route: 048
     Dates: start: 2018
  5. PARACETAMOL [Suspect]
     Active Substance: ACETAMINOPHEN
     Indication: INFLUENZA LIKE ILLNESS
     Route: 048
     Dates: start: 20171225, end: 20180102
  6. ROACTEMRA [Concomitant]
     Active Substance: TOCILIZUMAB
     Indication: RHEUMATOID ARTHRITIS
     Route: 041
     Dates: start: 2015

REACTIONS (1)
  - Liver injury [Recovered/Resolved]

NARRATIVE: CASE EVENT DATE: 20171230
